FAERS Safety Report 6820996-8 (Version None)
Quarter: 2010Q3

REPORT INFORMATION
  Report Type: 
  Country: None (occurrence: None)
  Receive Date: 20100707
  Receipt Date: 20071108
  Transmission Date: 20110219
  Serious: No
  Sender: FDA-Public Use
  Company Number: US-PFIZER INC-2007076386

PATIENT
  Sex: Female
  Weight: 54.5 kg

DRUGS (4)
  1. ZOLOFT [Suspect]
     Indication: POST-TRAUMATIC STRESS DISORDER
     Dates: start: 19870101
  2. ZYRTEC [Concomitant]
     Indication: HYPERSENSITIVITY
  3. TYLENOL [Concomitant]
  4. IBUPROFEN [Concomitant]

REACTIONS (2)
  - INCORRECT DOSE ADMINISTERED [None]
  - MALAISE [None]
